FAERS Safety Report 6112276-3 (Version None)
Quarter: 2009Q1

REPORT INFORMATION
  Report Type: 
  Country: None (occurrence: None)
  Receive Date: 20090311
  Receipt Date: 20090311
  Transmission Date: 20090719
  Serious: Yes (Other)
  Sender: FDA-Public Use
  Company Number: None

PATIENT
  Age: 47 Year
  Sex: Female
  Weight: 62.5964 kg

DRUGS (1)
  1. GABAPENTIN [Suspect]
     Indication: CONVULSION
     Dosage: 600 MG PO TID
     Route: 048
     Dates: start: 20090101

REACTIONS (1)
  - ABDOMINAL PAIN UPPER [None]
